FAERS Safety Report 5421919-9 (Version None)
Quarter: 2007Q3

REPORT INFORMATION
  Report Type: 
  Country: None (occurrence: None)
  Receive Date: 20070820
  Receipt Date: 20070820
  Transmission Date: 20080115
  Serious: Yes (Hospitalization)
  Sender: FDA-Public Use
  Company Number: None

PATIENT
  Age: 51 Year
  Sex: Female
  Weight: 39.9165 kg

DRUGS (3)
  1. ALIMTA [Suspect]
     Indication: NEOPLASM MALIGNANT
     Dosage: Q 3WKS IV
     Route: 042
     Dates: start: 20070606, end: 20070808
  2. AVASTIN [Suspect]
     Indication: NEOPLASM MALIGNANT
     Dosage: Q 3 WKS IV
     Route: 042
     Dates: start: 20070606, end: 20070808
  3. FOLIC ACID [Concomitant]

REACTIONS (3)
  - DYSPHAGIA [None]
  - NEOPLASM PROGRESSION [None]
  - THROAT TIGHTNESS [None]
